FAERS Safety Report 25452730 (Version 1)
Quarter: 2025Q2

REPORT INFORMATION
  Report Type: Spontaneous
  Country: US (occurrence: US)
  Receive Date: 20250618
  Receipt Date: 20250618
  Transmission Date: 20250716
  Serious: Yes (Death, Hospitalization, Other)
  Sender: AMGEN
  Company Number: US-AMGEN-USASP2025117627

PATIENT

DRUGS (1)
  1. RITUXIMAB [Suspect]
     Active Substance: RITUXIMAB
     Indication: Dermatitis atopic
     Route: 065

REACTIONS (29)
  - Death [Fatal]
  - Asthma [Unknown]
  - Infection [Unknown]
  - Opportunistic infection [Unknown]
  - Tuberculosis [Unknown]
  - Neoplasm malignant [Unknown]
  - Lung neoplasm malignant [Unknown]
  - Breast cancer [Unknown]
  - Malignant melanoma [Unknown]
  - Leukaemia [Unknown]
  - Lymphoma [Unknown]
  - Skin cancer [Unknown]
  - Basal cell carcinoma [Unknown]
  - Squamous cell carcinoma [Unknown]
  - Myocardial infarction [Unknown]
  - Cerebrovascular accident [Unknown]
  - Embolism venous [Unknown]
  - Deep vein thrombosis [Unknown]
  - Pulmonary embolism [Unknown]
  - Anxiety [Unknown]
  - Depression [Unknown]
  - Fracture [Unknown]
  - Cardiovascular disorder [Unknown]
  - Conjunctivitis [Unknown]
  - COVID-19 [Unknown]
  - Herpes simplex [Unknown]
  - Herpes zoster [Unknown]
  - Peripheral arterial occlusive disease [Unknown]
  - Off label use [Unknown]
